FAERS Safety Report 16013178 (Version 1)
Quarter: 2019Q1

REPORT INFORMATION
  Report Type: Spontaneous
  Country: US (occurrence: US)
  Receive Date: 20190131
  Receipt Date: 20190131
  Transmission Date: 20190418
  Serious: Yes (Hospitalization)
  Sender: FDA-Public Use
  Company Number: None

PATIENT
  Age: 80 Year
  Sex: Male
  Weight: 74.89 kg

DRUGS (1)
  1. SULFAMETHOXAZOLE/TRIMETHOPRIM [Suspect]
     Active Substance: SULFAMETHOXAZOLE\TRIMETHOPRIM
     Indication: CHRONIC OBSTRUCTIVE PULMONARY DISEASE
     Dosage: ?          OTHER DOSE:800/160MG;?
     Route: 048
     Dates: start: 20190111, end: 20190119

REACTIONS (6)
  - Vomiting [None]
  - Blood urea increased [None]
  - Nausea [None]
  - International normalised ratio increased [None]
  - Haematuria [None]
  - Blood creatinine increased [None]

NARRATIVE: CASE EVENT DATE: 20190119
